FAERS Safety Report 7152897-2 (Version None)
Quarter: 2010Q4

REPORT INFORMATION
  Report Type: 
  Country: None (occurrence: None)
  Receive Date: 20101209
  Receipt Date: 20101209
  Transmission Date: 20110411
  Serious: Yes (Life-Threatening, Hospitalization)
  Sender: FDA-Public Use
  Company Number: None

PATIENT
  Age: 17 Year
  Sex: Female
  Weight: 99.7913 kg

DRUGS (1)
  1. SUPRAX [Suspect]
     Indication: SINUSITIS
     Dosage: 400 MG TWICE DAILY
     Dates: start: 20101004, end: 20101010

REACTIONS (3)
  - BLISTER [None]
  - ORAL MUCOSAL ERYTHEMA [None]
  - PLATELET COUNT DECREASED [None]
